FAERS Safety Report 21718620 (Version 3)
Quarter: 2023Q1

REPORT INFORMATION
  Report Type: Report from Study
  Country: US (occurrence: US)
  Receive Date: 20221212
  Receipt Date: 20230113
  Transmission Date: 20230417
  Serious: Yes (Other)
  Sender: FDA-Public Use
  Company Number: US-ABBVIE-22K-163-4350093-00

PATIENT
  Age: 81 Year
  Sex: Male
  Weight: 94 kg

DRUGS (19)
  1. HUMIRA [Suspect]
     Active Substance: ADALIMUMAB
     Indication: Crohn^s disease
     Dosage: CITRATE FREE DOSE HELD FROM 30-MAR-2022 TO 28-APR-2022?FORM STRENGTH: 40 MILLIGRAM
     Route: 058
     Dates: end: 20220330
  2. HUMIRA [Suspect]
     Active Substance: ADALIMUMAB
     Indication: Colitis ulcerative
     Dosage: STRENGTH-40 MG
     Route: 058
     Dates: start: 2022
  3. HUMIRA [Suspect]
     Active Substance: ADALIMUMAB
     Dosage: CITRATE FREE DOSE HELD FROM 30-MAR-2022 TO 28-APR-2022?FORM STRENGTH: 40 MILLIGRAM
     Route: 058
     Dates: start: 20220428, end: 2022
  4. MODERNA COVID-19 VACCINE [Concomitant]
     Active Substance: ELASOMERAN
     Indication: COVID-19 immunisation
     Dosage: TIME INTERVAL: 1 TOTAL: FIRST DOSE
     Route: 030
     Dates: start: 20210313, end: 20210313
  5. MODERNA COVID-19 VACCINE [Concomitant]
     Active Substance: ELASOMERAN
     Indication: COVID-19 immunisation
     Dosage: TIME INTERVAL: 1 TOTAL: SECOND DOSE
     Route: 030
     Dates: start: 20210410, end: 20210410
  6. MODERNA COVID-19 VACCINE [Concomitant]
     Active Substance: ELASOMERAN
     Indication: COVID-19 immunisation
     Dosage: TIME INTERVAL: 1 TOTAL: THIRD DOSE
     Route: 030
     Dates: start: 20211012, end: 20211012
  7. TYLENOL [Concomitant]
     Active Substance: ACETAMINOPHEN
     Indication: Product used for unknown indication
  8. GABAPENTIN [Concomitant]
     Active Substance: GABAPENTIN
     Indication: Product used for unknown indication
  9. FLOMAX [Concomitant]
     Active Substance: TAMSULOSIN HYDROCHLORIDE
     Indication: Product used for unknown indication
  10. HIPREX [Concomitant]
     Active Substance: METHENAMINE HIPPURATE
     Indication: Product used for unknown indication
     Route: 048
  11. LIPITOR [Concomitant]
     Active Substance: ATORVASTATIN CALCIUM
     Indication: Product used for unknown indication
  12. PROBIOTIC BLEND [Concomitant]
     Indication: Product used for unknown indication
     Route: 048
  13. TURMERIC [Concomitant]
     Active Substance: TURMERIC
     Indication: Product used for unknown indication
  14. GLUCOPHAGE XR [Concomitant]
     Active Substance: METFORMIN HYDROCHLORIDE
     Indication: Product used for unknown indication
  15. COZAAR [Concomitant]
     Active Substance: LOSARTAN POTASSIUM
     Indication: Product used for unknown indication
  16. PROTONIX [Concomitant]
     Active Substance: PANTOPRAZOLE SODIUM
     Indication: Product used for unknown indication
  17. CHONDROITIN SULFATE (BOVINE)\GLUCOSAMINE HYDROCHLORIDE [Concomitant]
     Active Substance: CHONDROITIN SULFATE (BOVINE)\GLUCOSAMINE HYDROCHLORIDE
     Indication: Product used for unknown indication
     Route: 048
  18. VITAMIN D3 [Concomitant]
     Active Substance: CHOLECALCIFEROL
     Indication: Product used for unknown indication
  19. NORVASC [Concomitant]
     Active Substance: AMLODIPINE BESYLATE
     Indication: Product used for unknown indication

REACTIONS (36)
  - Spinal operation [Unknown]
  - Neck surgery [Unknown]
  - Spinal fusion surgery [Unknown]
  - Foraminotomy [Unknown]
  - Spinal laminectomy [Unknown]
  - Lumbar spinal stenosis [Unknown]
  - Incomplete spinal fusion [Unknown]
  - Benign prostatic hyperplasia [Unknown]
  - Bladder outlet obstruction [Unknown]
  - Crohn^s disease [Unknown]
  - Dyslipidaemia [Unknown]
  - Spondylolisthesis [Unknown]
  - Tendon rupture [Unknown]
  - Trigger finger [Unknown]
  - Colitis [Unknown]
  - Asthenia [Unknown]
  - Rotator cuff syndrome [Unknown]
  - Osteoarthritis [Unknown]
  - Carpal tunnel syndrome [Unknown]
  - Synovial cyst [Unknown]
  - Urinary incontinence [Unknown]
  - Gastrooesophageal reflux disease [Unknown]
  - Hyponatraemia [Unknown]
  - Hyperglycaemia [Unknown]
  - Type 2 diabetes mellitus [Unknown]
  - Hypoaesthesia [Unknown]
  - Arthritis [Unknown]
  - Back pain [Unknown]
  - Urinary tract infection [Unknown]
  - Arthralgia [Unknown]
  - Paraesthesia [Unknown]
  - Back pain [Unknown]
  - Rhinitis [Unknown]
  - Hypertension [Unknown]
  - Neck pain [Unknown]
  - Spinal operation [Recovering/Resolving]

NARRATIVE: CASE EVENT DATE: 20211001
